FAERS Safety Report 8466125 (Version 2)
Quarter: 2012Q4

REPORT INFORMATION
  Report Type: 
  Country: US (occurrence: US)
  Receive Date: 20120319
  Receipt Date: 20121010
  Transmission Date: 20130627
  Serious: Yes (Hospitalization, Other)
  Sender: FDA-Public Use
  Company Number: US-BAYER-2012-024504

PATIENT
  Age: 34 Year
  Sex: Female
  Weight: 86.17 kg

DRUGS (2)
  1. YASMIN [Suspect]
     Dosage: UNK
     Dates: start: 2000, end: 2010
  2. OCELLA [Suspect]
     Dosage: UNK
     Dates: start: 2000, end: 2010

REACTIONS (2)
  - Cholecystectomy [None]
  - Pancreatic disorder [None]
